FAERS Safety Report 5248700-8 (Version None)
Quarter: 2007Q1

REPORT INFORMATION
  Report Type: 
  Country: None (occurrence: None)
  Receive Date: 20070228
  Receipt Date: 20070126
  Transmission Date: 20070707
  Serious: No
  Sender: FDA-Public Use
  Company Number: US-GLAXOSMITHKLINE-A0633759A

PATIENT
  Age: 35 Year
  Sex: Male
  Weight: 57.7 kg

DRUGS (1)
  1. ARRANON [Suspect]
     Dosage: 513ML PER DAY
     Route: 042
     Dates: start: 20070103, end: 20070103

REACTIONS (1)
  - INFUSION SITE PAIN [None]
